FAERS Safety Report 7179418-2 (Version None)
Quarter: 2010Q4

REPORT INFORMATION
  Report Type: 
  Country: None (occurrence: None)
  Receive Date: 20101221
  Receipt Date: 20101214
  Transmission Date: 20110411
  Serious: Yes (Other)
  Sender: FDA-Public Use
  Company Number: US-AMGEN-USACT2010008962

PATIENT

DRUGS (12)
  1. PANITUMUMAB [Suspect]
     Indication: ADENOCARCINOMA PANCREAS
     Dosage: 4 MG/KG, UNK
     Dates: start: 20100708, end: 20101014
  2. GEMCITABINE HCL [Suspect]
     Dosage: 1000 MG/M2, UNK
     Dates: start: 20100708
  3. TARCEVA [Suspect]
     Dosage: 100 MG/M2, QD
     Route: 048
     Dates: start: 20100708, end: 20101027
  4. COMPAZINE [Concomitant]
  5. CREON [Concomitant]
  6. DOXYCYCLINE [Concomitant]
  7. HYDROCORTISONE [Concomitant]
  8. LOVENOX [Concomitant]
  9. MARINOL                            /00897601/ [Concomitant]
  10. TYLENOL (CAPLET) [Concomitant]
  11. VITAMIN A [Concomitant]
  12. ZANTAC                             /00550801/ [Concomitant]

REACTIONS (3)
  - MALIGNANT NEOPLASM PROGRESSION [None]
  - PANCREATIC CARCINOMA METASTATIC [None]
  - TINNITUS [None]
